FAERS Safety Report 4532742-1 (Version None)
Quarter: 2004Q4

REPORT INFORMATION
  Report Type: 
  Country: None (occurrence: None)
  Receive Date: 20041206
  Receipt Date: 20040930
  Transmission Date: 20050328
  Serious: No
  Sender: FDA-Public Use
  Company Number: USA041079837

PATIENT
  Sex: Female

DRUGS (8)
  1. CYMBALTA [Suspect]
     Indication: DEPRESSION
     Dosage: 60 MG DAY
     Dates: start: 20040917
  2. WELLBUTRIN SR [Concomitant]
  3. PAXIL [Concomitant]
  4. AMBIEN [Concomitant]
  5. TRAZODONE HCL [Concomitant]
  6. NEXIUM [Concomitant]
  7. LEVOXYL [Concomitant]
  8. ASPIRIN [Concomitant]

REACTIONS (3)
  - ANGER [None]
  - NAUSEA [None]
  - NERVOUSNESS [None]
